FAERS Safety Report 23127255 (Version 1)
Quarter: 2023Q4

REPORT INFORMATION
  Report Type: Spontaneous
  Country: US (occurrence: US)
  Receive Date: 20231031
  Receipt Date: 20231031
  Transmission Date: 20240110
  Serious: Yes (Hospitalization)
  Sender: FDA-Public Use
  Company Number: US-STRIDES ARCOLAB LIMITED-2023SP016049

PATIENT
  Age: 57 Year
  Sex: Male

DRUGS (1)
  1. METHOTREXATE [Suspect]
     Active Substance: METHOTREXATE
     Indication: Rheumatoid arthritis
     Dosage: UNK
     Route: 065

REACTIONS (6)
  - Atelectasis [Recovered/Resolved]
  - Pleural effusion [Recovered/Resolved]
  - Subdiaphragmatic abscess [Recovered/Resolved]
  - Pneumonia [Recovered/Resolved]
  - Infectious pleural effusion [Recovered/Resolved]
  - Empyema [Recovered/Resolved]
